FAERS Safety Report 7949177-1 (Version None)
Quarter: 2011Q4

REPORT INFORMATION
  Report Type: 
  Country: None (occurrence: None)
  Receive Date: 20111130
  Receipt Date: 20111124
  Transmission Date: 20120403
  Serious: Yes (Hospitalization)
  Sender: FDA-Public Use
  Company Number: CL-ROCHE-1012913

PATIENT
  Sex: Female
  Weight: 64 kg

DRUGS (1)
  1. XELODA [Suspect]
     Indication: RECTAL CANCER
     Route: 048
     Dates: start: 20110825, end: 20111017

REACTIONS (2)
  - ANAEMIA [None]
  - DEHYDRATION [None]
